FAERS Safety Report 13532335 (Version 1)
Quarter: 2017Q2

REPORT INFORMATION
  Report Type: Spontaneous
  Country: US (occurrence: US)
  Receive Date: 20170510
  Receipt Date: 20170510
  Transmission Date: 20170830
  Serious: No
  Sender: FDA-Public Use
  Company Number: US-009507513-1705USA001745

PATIENT
  Age: 20 Year
  Sex: Female
  Weight: 97.51 kg

DRUGS (1)
  1. NEXPLANON [Suspect]
     Active Substance: ETONOGESTREL
     Indication: CONTRACEPTION
     Dosage: 1 DF, 3 YEAR IMPLANT
     Route: 059

REACTIONS (6)
  - Dizziness [Unknown]
  - Implant site erythema [Unknown]
  - Malaise [Unknown]
  - Vomiting [Unknown]
  - Hypersomnia [Unknown]
  - Metrorrhagia [Unknown]
